FAERS Safety Report 5713462-4 (Version None)
Quarter: 2008Q2

REPORT INFORMATION
  Report Type: 
  Country: None (occurrence: None)
  Receive Date: 20080422
  Receipt Date: 20080326
  Transmission Date: 20081010
  Serious: No
  Sender: FDA-Public Use
  Company Number: US-BOEHRINGER INGELHEIM GMBH, GERMANY-2008-BP-04672BP

PATIENT
  Sex: Female

DRUGS (1)
  1. ZANTAC [Suspect]
     Route: 048
     Dates: start: 20080325

REACTIONS (2)
  - CHEST DISCOMFORT [None]
  - PALPITATIONS [None]
